FAERS Safety Report 8865464 (Version 1)
Quarter: 2012Q4

REPORT INFORMATION
  Report Type: 
  Country: US (occurrence: US)
  Receive Date: 20121024
  Receipt Date: 20121024
  Transmission Date: 20130627
  Serious: No
  Sender: FDA-Public Use
  Company Number: US-AMGEN-USASP2012003472

PATIENT
  Age: 62 Year
  Sex: Female
  Weight: 70.3 kg

DRUGS (13)
  1. ENBREL [Suspect]
     Indication: PRODUCT USED FOR UNKNOWN INDICATION
     Dosage: 50 mg, qwk
     Route: 058
  2. SYNTHROID [Concomitant]
     Dosage: 50 mug, UNK
  3. VITAMIN D /00107901/ [Concomitant]
     Dosage: 1000 IU, UNK
  4. ZOLOFT [Concomitant]
     Dosage: 25 mg, UNK
  5. ASA [Concomitant]
     Dosage: 81 mg, UNK
  6. BUSPIRONE [Concomitant]
     Dosage: 10 mg, UNK
  7. FOLIC ACID [Concomitant]
     Dosage: 1 mg, UNK
  8. POTASSIUM [Concomitant]
     Dosage: 99 mg, UNK
  9. PROPRANOLOL [Concomitant]
     Dosage: 10 mg, UNK
  10. TRIAMTERENE/HCTZ [Concomitant]
     Dosage: UNK
  11. PREVACID [Concomitant]
     Dosage: 15 mg, UNK
  12. LOSARTAN POTASSIUM [Concomitant]
     Dosage: 50 mg, UNK
  13. METHOTREXATE [Concomitant]
     Dosage: 1 g, UNK
     Dates: start: 20110304

REACTIONS (1)
  - Nausea [Unknown]
